FAERS Safety Report 10183100 (Version 2)
Quarter: 2016Q2

REPORT INFORMATION
  Report Type: Report from Study
  Country: US (occurrence: US)
  Receive Date: 20140520
  Receipt Date: 20160531
  Transmission Date: 20160815
  Serious: Yes (Other)
  Sender: FDA-Public Use
  Company Number: US-ROCHE-1403219

PATIENT
  Age: 53 Year
  Sex: Female

DRUGS (9)
  1. INCIVEK [Suspect]
     Active Substance: TELAPREVIR
     Indication: HEPATITIS C
     Route: 065
     Dates: start: 20130815, end: 201310
  2. PEGASYS [Suspect]
     Active Substance: PEGINTERFERON ALFA-2A
     Indication: HEPATITIS C
     Route: 058
     Dates: start: 20130815, end: 201405
  3. COPEGUS [Suspect]
     Active Substance: RIBAVIRIN
     Indication: HEPATITIS C
     Route: 048
     Dates: start: 20130815
  4. COPEGUS [Suspect]
     Active Substance: RIBAVIRIN
     Route: 048
  5. FLONASE (UNITED STATES) [Concomitant]
  6. PEGASYS [Suspect]
     Active Substance: PEGINTERFERON ALFA-2A
     Route: 058
     Dates: start: 201405
  7. METHADONE [Concomitant]
     Active Substance: METHADONE HYDROCHLORIDE
  8. AMBIEN [Concomitant]
     Active Substance: ZOLPIDEM TARTRATE
  9. CLOBETASOL [Concomitant]
     Active Substance: CLOBETASOL
     Route: 061

REACTIONS (2)
  - Pancytopenia [Unknown]
  - Rash generalised [Recovered/Resolved]

NARRATIVE: CASE EVENT DATE: 201310
